FAERS Safety Report 8318018-5 (Version None)
Quarter: 2012Q2

REPORT INFORMATION
  Report Type: 
  Country: None (occurrence: None)
  Receive Date: 20120427
  Receipt Date: 20120418
  Transmission Date: 20120825
  Serious: Yes (Life-Threatening, Hospitalization)
  Sender: FDA-Public Use
  Company Number: US-JNJFOC-20120408628

PATIENT
  Age: 65 Year
  Sex: Male
  Weight: 92.99 kg

DRUGS (3)
  1. LIPITOR [Concomitant]
     Indication: HYPERCHOLESTEROLAEMIA
     Route: 065
  2. DIOVAN [Concomitant]
     Indication: HYPERTENSION
     Route: 065
  3. STELARA [Suspect]
     Indication: PSORIASIS
     Dosage: HAS HAD 8 DOSES
     Route: 058
     Dates: start: 20100401

REACTIONS (2)
  - MYOCARDIAL INFARCTION [None]
  - HEPATIC STEATOSIS [None]
